FAERS Safety Report 25475899 (Version 1)
Quarter: 2025Q2

REPORT INFORMATION
  Report Type: Report from Study
  Country: JP (occurrence: JP)
  Receive Date: 20250625
  Receipt Date: 20250625
  Transmission Date: 20250717
  Serious: Yes (Death)
  Sender: ASTELLAS
  Company Number: JP-ASTELLAS-2025-AER-033974

PATIENT
  Age: 60 Year
  Sex: Male

DRUGS (2)
  1. PADCEV [Suspect]
     Active Substance: ENFORTUMAB VEDOTIN-EJFV
     Indication: Ureteric cancer
     Route: 065
     Dates: start: 20250108, end: 20250115
  2. PEMBROLIZUMAB [Concomitant]
     Active Substance: PEMBROLIZUMAB
     Indication: Ureteric cancer
     Route: 065
     Dates: start: 20250108

REACTIONS (4)
  - Cytokine release syndrome [Fatal]
  - Immune-mediated encephalitis [Fatal]
  - Febrile neutropenia [Fatal]
  - Dermatitis bullous [Fatal]
